FAERS Safety Report 8693135 (Version 4)
Quarter: 2015Q3

REPORT INFORMATION
  Report Type: Report from Study
  Country: US (occurrence: US)
  Receive Date: 20120730
  Receipt Date: 20150814
  Transmission Date: 20151125
  Serious: Yes (Hospitalization, Other)
  Sender: FDA-Public Use
  Company Number: US-ROCHE-1092332

PATIENT
  Sex: Female

DRUGS (17)
  1. ADVAIR HFA [Concomitant]
     Active Substance: FLUTICASONE PROPIONATE\SALMETEROL XINAFOATE
     Dosage: 500/50 2 PUFFS BY MOUTH DAILY
     Route: 065
  2. VENTOLIN HFA [Concomitant]
     Active Substance: ALBUTEROL SULFATE
     Dosage: 2PUFFS EVERY 4-6 HRS
     Route: 065
  3. SINGULAIR [Concomitant]
     Active Substance: MONTELUKAST SODIUM
     Route: 065
  4. PREDNISONE. [Concomitant]
     Active Substance: PREDNISONE
     Route: 065
  5. NYSTATIN. [Concomitant]
     Active Substance: NYSTATIN
     Route: 065
  6. XOLAIR [Suspect]
     Active Substance: OMALIZUMAB
     Indication: ASTHMA
     Dosage: LAST INJECTION RECEIVED ON 25/SEP/2008
     Route: 058
     Dates: start: 20080905
  7. SYMBICORT [Concomitant]
     Active Substance: BUDESONIDE\FORMOTEROL FUMARATE DIHYDRATE
     Dosage: 160/4.5 2 PUFFS BY MOUTH DAILY
     Route: 065
  8. ALBUTEROL SULFATE. [Concomitant]
     Active Substance: ALBUTEROL SULFATE
     Route: 065
  9. NASONEX [Concomitant]
     Active Substance: MOMETASONE FUROATE
     Dosage: 2 SPRAYS EACH NOSTRIL
     Route: 065
  10. XOLAIR [Suspect]
     Active Substance: OMALIZUMAB
     Indication: BRONCHITIS
  11. CEPHALEXIN. [Concomitant]
     Active Substance: CEPHALEXIN
     Route: 065
  12. PEPCID [Concomitant]
     Active Substance: FAMOTIDINE
     Indication: GASTROOESOPHAGEAL REFLUX DISEASE
     Route: 065
  13. TRILEPTAL [Concomitant]
     Active Substance: OXCARBAZEPINE
     Indication: SEIZURE
     Route: 065
  14. TRILEPTAL [Concomitant]
     Active Substance: OXCARBAZEPINE
     Indication: BIPOLAR DISORDER
  15. COMBIVENT [Concomitant]
     Active Substance: ALBUTEROL SULFATE\IPRATROPIUM BROMIDE
     Dosage: 2 PUFFS(AS NEEDED)
     Route: 065
  16. ARIPIPRAZOLE. [Concomitant]
     Active Substance: ARIPIPRAZOLE
     Indication: BIPOLAR DISORDER
     Dosage: 1 AT BEDTIME
     Route: 065
  17. ALPRAZOLAM. [Concomitant]
     Active Substance: ALPRAZOLAM
     Indication: ANXIETY
     Route: 065

REACTIONS (6)
  - Dyspnoea [Unknown]
  - Asthenia [Unknown]
  - Cough [Recovering/Resolving]
  - Asthma [Unknown]
  - Malaise [Unknown]
  - Exposure during pregnancy [Unknown]
